FAERS Safety Report 9126918 (Version 3)
Quarter: 2013Q2

REPORT INFORMATION
  Report Type: Report from Study
  Country: US (occurrence: US)
  Receive Date: 20130228
  Receipt Date: 20130510
  Transmission Date: 20140414
  Serious: Yes (Other)
  Sender: FDA-Public Use
  Company Number: PHEH2012US016450

PATIENT
  Age: 9 Year
  Sex: Male

DRUGS (14)
  1. AFINITOR [Suspect]
     Indication: TUBEROUS SCLEROSIS
     Dosage: 5 MG
     Route: 048
     Dates: start: 20120815
  2. AFINITOR [Suspect]
     Indication: GANGLIOGLIOMA
     Dosage: 7.5 MG
     Route: 048
  3. LAMICTAL [Concomitant]
     Dosage: 200 MG IN AM AND 300 MG IN PM
  4. DIASTAT [Concomitant]
     Dosage: 10 MG
     Route: 054
  5. PREVACID [Concomitant]
     Dosage: 30 MG, ONCE IN THE MORNING
  6. RISPERDAL [Concomitant]
     Dosage: 1.5 DF, BID
  7. TENEX [Concomitant]
     Dosage: 1 MG, BID
  8. ONFI [Concomitant]
     Dosage: 5 MG
  9. SABRIL [Concomitant]
  10. VIGABATRIN [Concomitant]
     Dosage: 500 MG IN AM AND 500 MG IN PM
  11. MIRALAX [Concomitant]
     Dosage: 1 DF, BID
  12. TAURINE [Concomitant]
     Dosage: 1 DF, BID
  13. ZANTAC [Concomitant]
     Dosage: 1 DF, AT NIGHT
  14. CARAFATE [Concomitant]
     Indication: STOMATITIS
     Dosage: CARAFATE SWISH IN AM AND PM, PRN

REACTIONS (4)
  - Fall [Not Recovered/Not Resolved]
  - Tooth fracture [Not Recovered/Not Resolved]
  - Convulsion [Recovered/Resolved]
  - Stomatitis [Unknown]
